FAERS Safety Report 8619199-6 (Version None)
Quarter: 2012Q3

REPORT INFORMATION
  Report Type: 
  Country: None (occurrence: None)
  Receive Date: 20120824
  Receipt Date: 20120820
  Transmission Date: 20120928
  Serious: Yes (Other)
  Sender: FDA-Public Use
  Company Number: CA-CELGENEUS-028-C5013-12040332

PATIENT
  Sex: Male
  Weight: 76.4 kg

DRUGS (6)
  1. LENALIDOMIDE [Suspect]
     Route: 048
     Dates: start: 20100201, end: 20120414
  2. ASPIRIN [Concomitant]
     Indication: THROMBOSIS
     Dosage: 81 MILLIGRAM
     Route: 048
     Dates: start: 20120425
  3. LENALIDOMIDE [Suspect]
     Route: 048
     Dates: start: 20120615
  4. TOBREX [Concomitant]
     Indication: INFECTION PROPHYLAXIS
     Dosage: .9 MILLIGRAM
     Route: 061
     Dates: start: 20120409, end: 20120613
  5. NEUPOGEN [Concomitant]
     Indication: DYSPEPSIA
     Dosage: 20 MILLIGRAM
     Route: 048
     Dates: start: 20111130
  6. RABEPRAZOLE SODIUM [Concomitant]
     Indication: DYSPEPSIA
     Dosage: 20 MILLIGRAM
     Route: 048
     Dates: start: 20111130

REACTIONS (1)
  - KERATOACANTHOMA [None]
